FAERS Safety Report 8402677-2 (Version None)
Quarter: 2012Q2

REPORT INFORMATION
  Report Type: 
  Country: None (occurrence: None)
  Receive Date: 20120601
  Receipt Date: 20120525
  Transmission Date: 20120825
  Serious: Yes (Hospitalization, Other)
  Sender: FDA-Public Use
  Company Number: US-ROCHE-1072520

PATIENT
  Age: 72 Year
  Sex: Female
  Weight: 112 kg

DRUGS (15)
  1. BISOPROLOL FUMARATE [Concomitant]
  2. PEMETREXED DISODIUM [Suspect]
     Indication: NON-SMALL CELL LUNG CANCER
     Route: 042
     Dates: start: 20100707
  3. DECADRON [Concomitant]
  4. HYDROCHLOROTHIAZIDE [Concomitant]
  5. AVASTIN [Suspect]
     Indication: NON-SMALL CELL LUNG CANCER
     Route: 042
     Dates: start: 20100707, end: 20100728
  6. FOLVITE [Concomitant]
  7. TRANDOLAPRIL [Concomitant]
  8. CISPLATIN [Suspect]
     Indication: NON-SMALL CELL LUNG CANCER
     Route: 042
     Dates: start: 20100707, end: 20100728
  9. ASPIRIN [Concomitant]
  10. EMEND [Concomitant]
  11. ATORVASTATIN CALCIUM [Concomitant]
  12. ALPRAZOLAM [Concomitant]
  13. ACETAMINOPHEN [Concomitant]
  14. FOSAMAX [Concomitant]
  15. CETIRIZINE HYDROCHLORIDE [Concomitant]

REACTIONS (2)
  - HEADACHE [None]
  - CONVULSION [None]
